FAERS Safety Report 17001527 (Version 2)
Quarter: 2019Q4

REPORT INFORMATION
  Report Type: Spontaneous
  Country: US (occurrence: US)
  Receive Date: 20191106
  Receipt Date: 20191128
  Transmission Date: 20200122
  Serious: No
  Sender: FDA-Public Use
  Company Number: US-TOLMAR, INC.-19US000681

PATIENT

DRUGS (1)
  1. ELIGARD [Suspect]
     Active Substance: LEUPROLIDE ACETATE
     Indication: PRODUCT USED FOR UNKNOWN INDICATION
     Dosage: 45 MG, UNKNOWN FREQUENCY
     Route: 058
     Dates: start: 20191014

REACTIONS (4)
  - Device leakage [None]
  - Syringe issue [None]
  - Intercepted product preparation error [None]
  - Product storage error [None]

NARRATIVE: CASE EVENT DATE: 20191014
